FAERS Safety Report 4274646-8 (Version None)
Quarter: 2004Q1

REPORT INFORMATION
  Report Type: 
  Country: None (occurrence: None)
  Receive Date: 20040115
  Receipt Date: 20040105
  Transmission Date: 20041129
  Serious: Yes (Death)
  Sender: FDA-Public Use
  Company Number: 2004GB00006

PATIENT
  Age: 73 Year
  Sex: Female
  Weight: 72 kg

DRUGS (15)
  1. MEROPENUM [Suspect]
     Indication: INFECTION
     Dosage: 500 MG BID IV
     Route: 042
     Dates: start: 20031115, end: 20031120
  2. AZATHIOPRINE [Suspect]
     Indication: IMMUNOSUPPRESSION
     Dosage: 175 MG QD PO
     Route: 048
     Dates: start: 20030518, end: 20031118
  3. ZYVOX [Suspect]
     Indication: GLYCOPEPTIDE ANTIBIOTIC RESISTANT ENTEROCOCCAL INFECTION
     Dosage: 600 MG BID IV
     Route: 042
     Dates: start: 20031115, end: 20031120
  4. EMLA [Concomitant]
  5. SENNA [Concomitant]
  6. ANUSOL [Concomitant]
  7. RABEPRAZOLE SODIUM [Concomitant]
  8. PIRITON [Concomitant]
  9. HYDROXYZINE [Concomitant]
  10. GLICLAZIDE [Concomitant]
  11. MAXOLON [Concomitant]
  12. FRUSEMIDE [Concomitant]
  13. PREDNISOLONE [Concomitant]
  14. FORTIJUCE [Concomitant]
  15. 1% MENTHOL IN AQUEOUS CREAM [Concomitant]

REACTIONS (2)
  - HEPATIC NECROSIS [None]
  - PNEUMONIA FUNGAL [None]
